FAERS Safety Report 6994606-3 (Version None)
Quarter: 2010Q3

REPORT INFORMATION
  Report Type: 
  Country: None (occurrence: None)
  Receive Date: 20100916
  Receipt Date: 20100916
  Transmission Date: 20110219
  Serious: Yes (Life-Threatening)
  Sender: FDA-Public Use
  Company Number: None

PATIENT
  Sex: Male
  Weight: 68.0396 kg

DRUGS (1)
  1. FLOVENT [Suspect]
     Indication: ASTHMA
     Dosage: TWO INHALATIONS TWICE DAILY PO
     Route: 048

REACTIONS (3)
  - BONE PAIN [None]
  - DEPRESSION [None]
  - PAIN [None]
